FAERS Safety Report 7293933-2 (Version None)
Quarter: 2011Q1

REPORT INFORMATION
  Report Type: 
  Country: None (occurrence: None)
  Receive Date: 20110203
  Receipt Date: 20110117
  Transmission Date: 20110831
  Serious: Yes (Other)
  Sender: FDA-Public Use
  Company Number: ACO_21501_2011

PATIENT
  Age: 63 Year
  Sex: Female

DRUGS (7)
  1. AMANTADINE HCL [Concomitant]
  2. MULTI-VIT (VITAMINS NOS) [Concomitant]
  3. ARICEPT [Concomitant]
  4. ASPIRIN [Concomitant]
  5. SANCTURA [Concomitant]
  6. AMPYRA [Suspect]
     Indication: PRODUCT USED FOR UNKNOWN INDICATION
     Dosage: 10 MG, DAILY, ORAL; 10 MG; BID, ORAL
     Route: 048
     Dates: start: 20101201, end: 20110109
  7. AMPYRA [Suspect]
     Indication: PRODUCT USED FOR UNKNOWN INDICATION
     Dosage: 10 MG, DAILY, ORAL; 10 MG; BID, ORAL
     Route: 048
     Dates: start: 20101205, end: 20101201

REACTIONS (4)
  - INAPPROPRIATE SCHEDULE OF DRUG ADMINISTRATION [None]
  - TONGUE BITING [None]
  - URINARY INCONTINENCE [None]
  - CONVULSION [None]
